FAERS Safety Report 21156258 (Version 1)
Quarter: 2022Q3

REPORT INFORMATION
  Report Type: Spontaneous
  Country: US (occurrence: US)
  Receive Date: 20220801
  Receipt Date: 20220801
  Transmission Date: 20221027
  Serious: No
  Sender: FDA-Public Use
  Company Number: US-PADAGIS-2022PAD00214

PATIENT

DRUGS (1)
  1. TERCONAZOLE [Suspect]
     Active Substance: TERCONAZOLE
     Indication: Vulvovaginal mycotic infection
     Dosage: UNK IN THE EVENING THE PAST 2 NIGHTS
     Route: 067
     Dates: start: 202206

REACTIONS (1)
  - Vaginal discharge [Not Recovered/Not Resolved]
